FAERS Safety Report 21220377 (Version 5)
Quarter: 2022Q4

REPORT INFORMATION
  Report Type: Report from Study
  Country: SE (occurrence: None)
  Receive Date: 20220817
  Receipt Date: 20221031
  Transmission Date: 20230113
  Serious: Yes (Hospitalization)
  Sender: FDA-Public Use
  Company Number: SE-ROCHE-3161221

PATIENT
  Age: 54 Year
  Sex: Male
  Weight: 129.5 kg

DRUGS (34)
  1. RITUXIMAB [Suspect]
     Active Substance: RITUXIMAB
     Indication: Follicular lymphoma stage IV
     Dosage: DATE OF LAST DOSE PRIOR TO EVENT: 22/FEB/2022
     Route: 041
     Dates: start: 20210902, end: 20211125
  2. RITUXIMAB [Suspect]
     Active Substance: RITUXIMAB
     Route: 041
     Dates: start: 20211228, end: 20220222
  3. EPCORITAMAB [Suspect]
     Active Substance: EPCORITAMAB
     Indication: Follicular lymphoma stage IV
     Dosage: PRIMING DOSE
     Route: 058
     Dates: start: 20210902, end: 20210902
  4. EPCORITAMAB [Suspect]
     Active Substance: EPCORITAMAB
     Dosage: INTERMEDIATE DOSE
     Route: 058
     Dates: start: 20210909, end: 20210909
  5. EPCORITAMAB [Suspect]
     Active Substance: EPCORITAMAB
     Dosage: FULL DOSE
     Route: 058
     Dates: start: 20210916, end: 20211118
  6. EPCORITAMAB [Suspect]
     Active Substance: EPCORITAMAB
     Dosage: FULL DOSE
     Route: 058
     Dates: start: 20211125, end: 20220405
  7. EPCORITAMAB [Suspect]
     Active Substance: EPCORITAMAB
     Dosage: REPRIMING DOSE
     Route: 058
     Dates: start: 20220519, end: 20220519
  8. EPCORITAMAB [Suspect]
     Active Substance: EPCORITAMAB
     Dosage: RP INTERMEDIATE DOSE
     Route: 058
     Dates: start: 20220527, end: 20220527
  9. EPCORITAMAB [Suspect]
     Active Substance: EPCORITAMAB
     Dosage: REPRIMING DOSE
     Route: 058
     Dates: start: 20220615, end: 20220615
  10. EPCORITAMAB [Suspect]
     Active Substance: EPCORITAMAB
     Dosage: SINGLE DOSE
     Route: 058
     Dates: start: 20220623, end: 20220623
  11. EPCORITAMAB [Suspect]
     Active Substance: EPCORITAMAB
     Dosage: REPRIMING DOSE
     Route: 058
     Dates: start: 20220915, end: 20220915
  12. EPCORITAMAB [Suspect]
     Active Substance: EPCORITAMAB
     Dosage: RP INTERMEDIATE DOSE
     Route: 058
     Dates: start: 20220922, end: 20220922
  13. BENDAMUSTINE [Suspect]
     Active Substance: BENDAMUSTINE
     Indication: Follicular lymphoma stage IV
     Route: 042
     Dates: start: 20210902, end: 20210903
  14. BENDAMUSTINE [Suspect]
     Active Substance: BENDAMUSTINE
     Route: 042
     Dates: start: 20210930, end: 20211001
  15. BENDAMUSTINE [Suspect]
     Active Substance: BENDAMUSTINE
     Route: 042
     Dates: start: 20211028, end: 20211029
  16. BENDAMUSTINE [Suspect]
     Active Substance: BENDAMUSTINE
     Route: 042
     Dates: start: 20211125, end: 20211125
  17. BENDAMUSTINE [Suspect]
     Active Substance: BENDAMUSTINE
     Route: 042
     Dates: start: 20211126, end: 20211126
  18. BENDAMUSTINE [Suspect]
     Active Substance: BENDAMUSTINE
     Route: 042
     Dates: start: 20211228, end: 20211229
  19. BENDAMUSTINE [Suspect]
     Active Substance: BENDAMUSTINE
     Route: 042
     Dates: start: 20220222, end: 20220223
  20. CETIRIZINE HYDROCHLORIDE [Concomitant]
     Active Substance: CETIRIZINE HYDROCHLORIDE
     Route: 048
     Dates: start: 2018
  21. CETIRIZINE HYDROCHLORIDE [Concomitant]
     Active Substance: CETIRIZINE HYDROCHLORIDE
     Dates: start: 20220222, end: 20220623
  22. ACETAMINOPHEN [Concomitant]
     Active Substance: ACETAMINOPHEN
     Dosage: 22-FEB-2022, 19-MAY-2022, 27-MAY-2022, 15-JUN-2022 AND 23-JUN-2022;
     Route: 048
     Dates: start: 20210902
  23. PREDNISONE [Concomitant]
     Active Substance: PREDNISONE
     Route: 048
     Dates: start: 20220519
  24. BETAMETASON [Concomitant]
     Dosage: ON DAY 1 OF EVERY CYCLE FROM 30-SEP-2021 TO 23-FEB-2022.
     Route: 048
  25. ACYCLOVIR [Concomitant]
     Active Substance: ACYCLOVIR
  26. FILGRASTIM [Concomitant]
     Active Substance: FILGRASTIM
     Dates: start: 20220208, end: 20220209
  27. MOMETASONE FUROATE [Concomitant]
     Active Substance: MOMETASONE FUROATE
     Dates: start: 2018
  28. PEGFILGRASTIM [Concomitant]
     Active Substance: PEGFILGRASTIM
     Dates: start: 20220511, end: 20220511
  29. ALBUTEROL [Concomitant]
     Active Substance: ALBUTEROL
     Dates: start: 2000
  30. SULFAMETHOXAZOLE\TRIMETHOPRIM [Concomitant]
     Active Substance: SULFAMETHOXAZOLE\TRIMETHOPRIM
     Dates: start: 20210907
  31. CIPROFLOXACIN [Concomitant]
     Active Substance: CIPROFLOXACIN
     Dates: start: 20220606, end: 20220611
  32. PIPERACILLIN SODIUM\TAZOBACTAM SODIUM [Concomitant]
     Active Substance: PIPERACILLIN SODIUM\TAZOBACTAM SODIUM
     Dates: start: 20220602, end: 20220710
  33. DOXYCYCLINE [Concomitant]
     Active Substance: DOXYCYCLINE
     Dates: start: 20220726, end: 20220729
  34. MOXIFLOXACIN [Concomitant]
     Active Substance: MOXIFLOXACIN
     Dates: start: 20220729, end: 20220803

REACTIONS (2)
  - COVID-19 [Recovered/Resolved]
  - Infection [Recovered/Resolved]

NARRATIVE: CASE EVENT DATE: 20220308
